FAERS Safety Report 17985751 (Version 1)
Quarter: 2020Q3

REPORT INFORMATION
  Report Type: Spontaneous
  Country: GB (occurrence: GB)
  Receive Date: 20200706
  Receipt Date: 20200706
  Transmission Date: 20201103
  Serious: Yes (Disabling, Other)
  Sender: FDA-Public Use
  Company Number: GB-SA-2020SA171369

PATIENT

DRUGS (3)
  1. CETIRIZINE [Concomitant]
     Active Substance: CETIRIZINE HYDROCHLORIDE
  2. PARACETAMOL [Concomitant]
     Active Substance: ACETAMINOPHEN
  3. RIFINAH [Suspect]
     Active Substance: ISONIAZID\RIFAMPIN
     Dosage: 2 HOUR BEFORE MEALS. 300/150 MG
     Route: 048
     Dates: start: 2020, end: 20200615

REACTIONS (2)
  - Arthralgia [Not Recovered/Not Resolved]
  - Temporomandibular joint syndrome [Not Recovered/Not Resolved]

NARRATIVE: CASE EVENT DATE: 20200611
